FAERS Safety Report 25052918 (Version 4)
Quarter: 2025Q3

REPORT INFORMATION
  Report Type: Spontaneous
  Country: US (occurrence: US)
  Receive Date: 20250307
  Receipt Date: 20250916
  Transmission Date: 20251021
  Serious: No
  Sender: SANOFI AVENTIS
  Company Number: US-SA-2025SA064083

PATIENT
  Age: 60 Year
  Sex: Female

DRUGS (3)
  1. DUPIXENT [Suspect]
     Active Substance: DUPILUMAB
     Indication: Dermatitis atopic
     Route: 058
     Dates: start: 20250214, end: 20250214
  2. DUPIXENT [Suspect]
     Active Substance: DUPILUMAB
     Dosage: 300 MG, QOW
     Route: 058
     Dates: start: 2025
  3. AMBIEN [Concomitant]
     Active Substance: ZOLPIDEM TARTRATE

REACTIONS (6)
  - Sleep disorder due to a general medical condition [Recovering/Resolving]
  - Weight increased [Unknown]
  - Decreased interest [Unknown]
  - Depression [Unknown]
  - Dermatitis atopic [Recovering/Resolving]
  - Therapeutic response shortened [Recovering/Resolving]

NARRATIVE: CASE EVENT DATE: 20250101
